FAERS Safety Report 4710275-7 (Version None)
Quarter: 2005Q3

REPORT INFORMATION
  Report Type: 
  Country: None (occurrence: None)
  Receive Date: 20050711
  Receipt Date: 20050629
  Transmission Date: 20060218
  Serious: Yes (Other)
  Sender: FDA-Public Use
  Company Number: US-JNJFOC-20050700608

PATIENT
  Sex: Male
  Weight: 83.92 kg

DRUGS (3)
  1. REMICADE [Suspect]
     Indication: ARTHRITIS
     Route: 042
  2. ENBREL [Concomitant]
     Indication: ARTHRITIS
     Dosage: 4-5 MONTHS
  3. AZATHIOPRINE [Concomitant]
     Indication: ARTHRITIS
     Dosage: 50 MG TABLETS, 2 PER DAY FOR 7-8 YEARS

REACTIONS (4)
  - ABDOMINAL OPERATION [None]
  - APPENDICECTOMY [None]
  - DRUG INEFFECTIVE [None]
  - THERAPEUTIC RESPONSE DECREASED [None]
